FAERS Safety Report 7296831-3 (Version None)
Quarter: 2011Q1

REPORT INFORMATION
  Report Type: 
  Country: None (occurrence: None)
  Receive Date: 20110216
  Receipt Date: 20110203
  Transmission Date: 20110831
  Serious: Yes (Other)
  Sender: FDA-Public Use
  Company Number: US-BAYER-2011-001697

PATIENT
  Sex: Male

DRUGS (4)
  1. LABETALOL [Concomitant]
     Dosage: DAILY DOSE 200 MG
  2. LABETALOL [Concomitant]
     Dosage: 200 MG, BID
  3. NEXAVAR [Suspect]
     Indication: RENAL CELL CARCINOMA
     Dosage: 400 MG, BID
     Dates: start: 20101223, end: 20110106
  4. LISINOPRIL [Concomitant]
     Dosage: DAILY DOSE 40 MG

REACTIONS (9)
  - SKIN EXFOLIATION [None]
  - BLOOD PRESSURE INCREASED [None]
  - DRY SKIN [None]
  - PAIN IN EXTREMITY [None]
  - BLISTER [None]
  - BURNING SENSATION [None]
  - PRURITUS [None]
  - GAIT DISTURBANCE [None]
  - HYPERAESTHESIA [None]
